FAERS Safety Report 19374172 (Version 2)
Quarter: 2021Q2

REPORT INFORMATION
  Report Type: Spontaneous
  Country: CA (occurrence: CA)
  Receive Date: 20210603
  Receipt Date: 20210613
  Transmission Date: 20210717
  Serious: Yes (Hospitalization, Other)
  Sender: FDA-Public Use
  Company Number: CA-VISTAPHARM, INC.-VER202105-001368

PATIENT
  Sex: Female
  Weight: 1.39 kg

DRUGS (1)
  1. METHADONE [Suspect]
     Active Substance: METHADONE HYDROCHLORIDE
     Route: 064

REACTIONS (4)
  - Foetal exposure during pregnancy [Unknown]
  - Ileus paralytic [Recovered/Resolved]
  - Respiratory distress [Recovered/Resolved]
  - Narcotic bowel syndrome [Recovered/Resolved]
